FAERS Safety Report 23721056 (Version 1)
Quarter: 2024Q2

REPORT INFORMATION
  Report Type: Report from Study
  Country: US (occurrence: US)
  Receive Date: 20240409
  Receipt Date: 20240409
  Transmission Date: 20240716
  Serious: Yes (Other)
  Sender: FDA-Public Use
  Company Number: US-HORIZON THERAPEUTICS-HZN-2024-003921

PATIENT

DRUGS (2)
  1. TEPEZZA [Suspect]
     Active Substance: TEPROTUMUMAB-TRBW
     Indication: Endocrine ophthalmopathy
     Dosage: UNK, FIRST INFUSION
     Route: 042
     Dates: start: 20231108
  2. TEPEZZA [Suspect]
     Active Substance: TEPROTUMUMAB-TRBW
     Dosage: UNK, SIXTH INFUSION
     Route: 042
     Dates: start: 2024

REACTIONS (8)
  - Diabetes mellitus [Unknown]
  - Neuralgia [Unknown]
  - Ear pain [Unknown]
  - Dry mouth [Unknown]
  - Muscle spasms [Unknown]
  - Dry skin [Unknown]
  - Glycosylated haemoglobin increased [Unknown]
  - Onychoclasis [Unknown]

NARRATIVE: CASE EVENT DATE: 20240101
